FAERS Safety Report 7033126-7 (Version None)
Quarter: 2010Q4

REPORT INFORMATION
  Report Type: 
  Country: None (occurrence: None)
  Receive Date: 20101007
  Receipt Date: 20100928
  Transmission Date: 20110411
  Serious: Yes (Other)
  Sender: FDA-Public Use
  Company Number: US-JNJFOC-20100908520

PATIENT
  Sex: Male
  Weight: 73.48 kg

DRUGS (4)
  1. REMICADE [Suspect]
     Indication: PSORIATIC ARTHROPATHY
  2. LISINOPRIL [Concomitant]
     Indication: BLOOD PRESSURE
  3. ALENDRONATE SODIUM [Concomitant]
     Indication: OSTEOPOROSIS
  4. VITAMIN D3 [Concomitant]
     Indication: NUTRITIONAL SUPPORT
     Dosage: 2000 UNITS

REACTIONS (2)
  - CHEST PAIN [None]
  - RENAL PAIN [None]
